FAERS Safety Report 10243269 (Version 1)
Quarter: 2014Q2

REPORT INFORMATION
  Report Type: Spontaneous
  Country: CO (occurrence: CO)
  Receive Date: 20140618
  Receipt Date: 20140618
  Transmission Date: 20141212
  Serious: Yes (Other)
  Sender: FDA-Public Use
  Company Number: CO-JNJFOC-20140608580

PATIENT
  Age: 58 Year
  Sex: Female

DRUGS (3)
  1. REMICADE [Suspect]
     Indication: PRODUCT USED FOR UNKNOWN INDICATION
     Route: 042
     Dates: start: 2009
  2. HYDROCORTISONE [Concomitant]
     Indication: PREMEDICATION
     Route: 065
  3. CLEMASTINE [Concomitant]
     Indication: PREMEDICATION
     Route: 065

REACTIONS (6)
  - Dyspnoea [Unknown]
  - Chest pain [Unknown]
  - Hyperhidrosis [Unknown]
  - Abdominal pain upper [Unknown]
  - Cough [Unknown]
  - Anal sphincter atony [Unknown]
